FAERS Safety Report 15941707 (Version 2)
Quarter: 2019Q1

REPORT INFORMATION
  Report Type: Spontaneous
  Country: US (occurrence: US)
  Receive Date: 20190208
  Receipt Date: 20190220
  Transmission Date: 20190417
  Serious: Yes (Other)
  Sender: FDA-Public Use
  Company Number: US-ASTRAZENECA-2018SF00234

PATIENT
  Age: 691 Month
  Sex: Male

DRUGS (29)
  1. PRILOSEC OTC [Suspect]
     Active Substance: OMEPRAZOLE MAGNESIUM
     Route: 048
     Dates: start: 200202, end: 200612
  2. NYSTATIN. [Concomitant]
     Active Substance: NYSTATIN
     Dates: start: 20041201
  3. PREVACID [Suspect]
     Active Substance: LANSOPRAZOLE
     Route: 048
     Dates: start: 20060131
  4. LORTAB [Concomitant]
     Active Substance: ACETAMINOPHEN\HYDROCODONE BITARTRATE
     Dates: start: 20070418
  5. CRESTOR [Concomitant]
     Active Substance: ROSUVASTATIN CALCIUM
     Dates: start: 20081221
  6. VIOXX [Concomitant]
     Active Substance: ROFECOXIB
     Dates: start: 20040828
  7. VITAMIN D3 [Concomitant]
     Active Substance: CHOLECALCIFEROL
  8. FLEXERIL [Concomitant]
     Active Substance: CYCLOBENZAPRINE HYDROCHLORIDE
     Dates: start: 20031009
  9. RANITIDINE. [Concomitant]
     Active Substance: RANITIDINE
     Dates: start: 20121101
  10. DOXYCYCLINE. [Concomitant]
     Active Substance: DOXYCYCLINE
     Dates: start: 20121203
  11. MELOXICAM. [Concomitant]
     Active Substance: MELOXICAM
     Dates: start: 20100601
  12. CELEBREX [Concomitant]
     Active Substance: CELECOXIB
     Dates: start: 20040405
  13. ETODOLAC. [Concomitant]
     Active Substance: ETODOLAC
     Dates: start: 20030614
  14. ATENOLOL. [Concomitant]
     Active Substance: ATENOLOL
     Dates: start: 20100601
  15. MECLIZINE [Concomitant]
     Active Substance: MECLIZINE HYDROCHLORIDE
     Dates: start: 20070831
  16. DEXPAK [Concomitant]
     Active Substance: DEXAMETHASONE
     Dates: start: 20070418
  17. CLINDAMYCIN. [Concomitant]
     Active Substance: CLINDAMYCIN
     Dates: start: 20161223
  18. NEXIUM [Suspect]
     Active Substance: ESOMEPRAZOLE MAGNESIUM
     Route: 048
     Dates: start: 200202, end: 200612
  19. PRILOSEC [Suspect]
     Active Substance: OMEPRAZOLE MAGNESIUM
     Route: 048
     Dates: start: 200202, end: 200612
  20. MEDROL [Concomitant]
     Active Substance: METHYLPREDNISOLONE
     Dates: start: 20081009
  21. PROTONIX [Suspect]
     Active Substance: PANTOPRAZOLE SODIUM
     Route: 065
     Dates: start: 200202, end: 200602
  22. SULFAMETHOXAZOLE [Concomitant]
     Active Substance: SULFAMETHOXAZOLE
     Dates: start: 20090803
  23. SIMVASTATIN. [Concomitant]
     Active Substance: SIMVASTATIN
     Dates: start: 20070831
  24. OLOPATADINE. [Concomitant]
     Active Substance: OLOPATADINE
     Dates: start: 20161223
  25. NEXIUM [Suspect]
     Active Substance: ESOMEPRAZOLE MAGNESIUM
     Route: 048
     Dates: start: 20030608
  26. NEXIUM 24HR [Suspect]
     Active Substance: ESOMEPRAZOLE MAGNESIUM
     Route: 048
     Dates: start: 200202, end: 200612
  27. PREVACID [Suspect]
     Active Substance: LANSOPRAZOLE
     Route: 065
     Dates: start: 200202, end: 200612
  28. PROTONIX [Suspect]
     Active Substance: PANTOPRAZOLE SODIUM
     Route: 048
     Dates: start: 20040419
  29. BEXTRA [Concomitant]
     Active Substance: VALDECOXIB
     Dates: start: 20030508

REACTIONS (1)
  - Chronic kidney disease [Unknown]

NARRATIVE: CASE EVENT DATE: 201307
